FAERS Safety Report 18166445 (Version 4)
Quarter: 2021Q1

REPORT INFORMATION
  Report Type: Spontaneous
  Country: US (occurrence: US)
  Receive Date: 20200819
  Receipt Date: 20210106
  Transmission Date: 20210419
  Serious: No
  Sender: FDA-Public Use
  Company Number: US-KARYOPHARM-2020KPT000881

PATIENT

DRUGS (9)
  1. TYLENOL [Concomitant]
     Active Substance: ACETAMINOPHEN
     Indication: PRODUCT USED FOR UNKNOWN INDICATION
  2. ONDANSETRON HCL [Concomitant]
     Active Substance: ONDANSETRON HYDROCHLORIDE
     Indication: PRODUCT USED FOR UNKNOWN INDICATION
  3. ACYCLOVIR. [Concomitant]
     Active Substance: ACYCLOVIR
     Indication: PRODUCT USED FOR UNKNOWN INDICATION
  4. XPOVIO [Suspect]
     Active Substance: SELINEXOR
     Dosage: 80 MG, WEEKLY
     Route: 048
     Dates: start: 20200811, end: 20201209
  5. SENNA [Concomitant]
     Active Substance: SENNA LEAF\SENNOSIDES\SENNOSIDES A AND B
     Indication: PRODUCT USED FOR UNKNOWN INDICATION
  6. NYSTATIN. [Concomitant]
     Active Substance: NYSTATIN
     Indication: PRODUCT USED FOR UNKNOWN INDICATION
  7. XPOVIO [Suspect]
     Active Substance: SELINEXOR
     Indication: DIFFUSE LARGE B-CELL LYMPHOMA
     Dosage: 60 MG, 2X/WEEK
     Route: 048
     Dates: start: 20200617
  8. XPOVIO [Suspect]
     Active Substance: SELINEXOR
     Dosage: 60 MG, 2X/WEEK
     Route: 048
     Dates: start: 20200724, end: 20200811
  9. OLANZAPINE. [Concomitant]
     Active Substance: OLANZAPINE
     Indication: PRODUCT USED FOR UNKNOWN INDICATION

REACTIONS (14)
  - Dysphonia [Unknown]
  - Diffuse large B-cell lymphoma [Unknown]
  - Thrombocytopenia [Not Recovered/Not Resolved]
  - Weight decreased [Not Recovered/Not Resolved]
  - Hypersomnia [Unknown]
  - Throat irritation [Unknown]
  - Candida infection [Unknown]
  - Ageusia [Unknown]
  - Dizziness [Unknown]
  - Nausea [Recovering/Resolving]
  - Increased upper airway secretion [Unknown]
  - Constipation [Recovering/Resolving]
  - Fatigue [Recovering/Resolving]
  - Decreased appetite [Not Recovered/Not Resolved]

NARRATIVE: CASE EVENT DATE: 202007
